FAERS Safety Report 17202505 (Version 6)
Quarter: 2020Q2

REPORT INFORMATION
  Report Type: Report from Study
  Country: KR (occurrence: KR)
  Receive Date: 20191226
  Receipt Date: 20200601
  Transmission Date: 20200713
  Serious: Yes (Hospitalization)
  Sender: FDA-Public Use
  Company Number: KR-EISAI MEDICAL RESEARCH-EC-2019-067521

PATIENT
  Age: 78 Year
  Sex: Male
  Weight: 66 kg

DRUGS (26)
  1. LENVATINIB [Suspect]
     Active Substance: LENVATINIB
     Route: 048
     Dates: start: 20200228, end: 20200316
  2. TRAMADOL. [Concomitant]
     Active Substance: TRAMADOL
  3. ASPIRIN. [Concomitant]
     Active Substance: ASPIRIN
  4. CARVEDILOL. [Concomitant]
     Active Substance: CARVEDILOL
  5. CA GLUCONATE [Concomitant]
     Active Substance: CALCIUM GLUCONATE
  6. RABEPRAZOLE [Concomitant]
     Active Substance: RABEPRAZOLE
     Route: 048
  7. AMLODIPINE [Concomitant]
     Active Substance: AMLODIPINE BESYLATE
  8. LENVATINIB [Suspect]
     Active Substance: LENVATINIB
     Route: 048
     Dates: start: 20191029, end: 20191114
  9. FINASTERIDE. [Concomitant]
     Active Substance: FINASTERIDE
  10. METFORMIN ER [Concomitant]
     Active Substance: METFORMIN HYDROCHLORIDE
  11. SPIRONOLACTONE. [Concomitant]
     Active Substance: SPIRONOLACTONE
  12. HARMONILAN [Concomitant]
  13. HUMULIN NOS [Concomitant]
     Active Substance: INSULIN HUMAN
  14. LENVATINIB [Suspect]
     Active Substance: LENVATINIB
     Route: 048
     Dates: start: 20191129, end: 20191218
  15. BENZYDAMINE [Concomitant]
     Active Substance: BENZYDAMINE
  16. SK ALBUMIN [Concomitant]
  17. LENVATINIB [Suspect]
     Active Substance: LENVATINIB
     Route: 048
     Dates: start: 20190730, end: 20191014
  18. EVEROLIMUS. [Suspect]
     Active Substance: EVEROLIMUS
     Indication: RENAL CELL CARCINOMA
     Route: 048
     Dates: start: 20190528, end: 20191218
  19. LEVOTHYROXINE. [Concomitant]
     Active Substance: LEVOTHYROXINE
  20. LASIX [Concomitant]
     Active Substance: FUROSEMIDE
  21. CANDESARTAN. [Concomitant]
     Active Substance: CANDESARTAN
  22. ROSUVASTATIN. [Concomitant]
     Active Substance: ROSUVASTATIN
  23. LENVATINIB [Suspect]
     Active Substance: LENVATINIB
     Indication: RENAL CELL CARCINOMA
     Route: 048
     Dates: start: 20190528, end: 20190702
  24. LENVATINIB [Suspect]
     Active Substance: LENVATINIB
     Route: 048
     Dates: start: 20200103, end: 20200112
  25. LENVATINIB [Suspect]
     Active Substance: LENVATINIB
     Route: 048
     Dates: start: 20200211, end: 20200227
  26. TAMSULOSIN [Concomitant]
     Active Substance: TAMSULOSIN

REACTIONS (2)
  - Cardiac failure acute [Recovering/Resolving]
  - Decreased appetite [Recovering/Resolving]

NARRATIVE: CASE EVENT DATE: 20191216
